FAERS Safety Report 9645383 (Version 1)
Quarter: 2013Q4

REPORT INFORMATION
  Report Type: Spontaneous
  Country: US (occurrence: US)
  Receive Date: 20131025
  Receipt Date: 20131025
  Transmission Date: 20140711
  Serious: Yes (Hospitalization)
  Sender: FDA-Public Use
  Company Number: US-PFIZER INC-2013300766

PATIENT
  Sex: Female

DRUGS (3)
  1. HYDROCORTISONE [Suspect]
     Indication: ADDISON^S DISEASE
     Dosage: UNK
  2. BUTRANS [Suspect]
     Dosage: 10 UG, PER HR (10MCG/HR)
  3. SYNTHROID [Suspect]
     Indication: HYPOTHYROIDISM
     Dosage: UNK

REACTIONS (2)
  - Fall [Unknown]
  - Head injury [Unknown]
